FAERS Safety Report 13468750 (Version 1)
Quarter: 2017Q2

REPORT INFORMATION
  Report Type: Spontaneous
  Country: US (occurrence: US)
  Receive Date: 20170421
  Receipt Date: 20170421
  Transmission Date: 20170830
  Serious: No
  Sender: FDA-Public Use
  Company Number: US-BIOMARINAP-US-2017-113687

PATIENT
  Sex: Male
  Weight: 16.78 kg

DRUGS (1)
  1. KUVAN [Suspect]
     Active Substance: SAPROPTERIN DIHYDROCHLORIDE
     Indication: PHENYLKETONURIA
     Dosage: 100 MG, QD
     Route: 048
     Dates: start: 20160112

REACTIONS (4)
  - Screaming [Unknown]
  - Aggression [Unknown]
  - Psychomotor hyperactivity [Unknown]
  - Crying [Unknown]
